FAERS Safety Report 23902423 (Version 1)
Quarter: 2024Q2

REPORT INFORMATION
  Report Type: Spontaneous
  Country: US (occurrence: None)
  Receive Date: 20240527
  Receipt Date: 20240527
  Transmission Date: 20240716
  Serious: No
  Sender: FDA-Public Use
  Company Number: US-ROCHE-3522654

PATIENT
  Sex: Female

DRUGS (24)
  1. ACTEMRA [Suspect]
     Active Substance: TOCILIZUMAB
     Indication: Rheumatoid arthritis
     Dosage: 162 MG/0.9 ML, LAST TOOK ACTEMRA ON 20/3/2024
     Route: 058
  2. ACTEMRA [Suspect]
     Active Substance: TOCILIZUMAB
  3. ACTEMRA [Suspect]
     Active Substance: TOCILIZUMAB
  4. ARAVA [Concomitant]
     Active Substance: LEFLUNOMIDE
  5. B1 [Concomitant]
  6. METHYLCOBALAMIN [Concomitant]
     Active Substance: METHYLCOBALAMIN
  7. CALCIUM CITRATE [Concomitant]
     Active Substance: CALCIUM CITRATE
     Dosage: 250-5 MG
  8. COLACE [Concomitant]
     Active Substance: DOCUSATE SODIUM
  9. VITAMIN D3 [Concomitant]
     Active Substance: CHOLECALCIFEROL
  10. DICLOFENAC [Concomitant]
     Active Substance: DICLOFENAC
  11. FLUTICASONE [Concomitant]
     Active Substance: FLUTICASONE
  12. FOSAMAX [Concomitant]
     Active Substance: ALENDRONATE SODIUM
  13. GABAPENTIN [Concomitant]
     Active Substance: GABAPENTIN
  14. HYDROCHLOROTHIAZIDE [Concomitant]
     Active Substance: HYDROCHLOROTHIAZIDE
  15. HYDROCODONE [Concomitant]
     Active Substance: HYDROCODONE
  16. IRON [Concomitant]
     Active Substance: IRON
  17. LEVOTHYROXINE [Concomitant]
     Active Substance: LEVOTHYROXINE\LEVOTHYROXINE SODIUM
  18. LISINOPRIL [Concomitant]
     Active Substance: LISINOPRIL
  19. LORATADINE [Concomitant]
     Active Substance: LORATADINE
  20. MIRALAX [Concomitant]
     Active Substance: POLYETHYLENE GLYCOL 3350
     Dosage: 17 GM
  21. MONTELUKAST [Concomitant]
     Active Substance: MONTELUKAST SODIUM
  22. ROPINIROLE [Concomitant]
     Active Substance: ROPINIROLE
  23. SYMBICORT [Concomitant]
     Active Substance: BUDESONIDE\FORMOTEROL FUMARATE DIHYDRATE
     Dosage: 80-4.5 MCG
  24. VENTOLIN [Concomitant]
     Active Substance: ALBUTEROL SULFATE
     Dosage: 108

REACTIONS (4)
  - Dyspepsia [Not Recovered/Not Resolved]
  - Depression [Not Recovered/Not Resolved]
  - Insomnia [Not Recovered/Not Resolved]
  - Alopecia [Not Recovered/Not Resolved]
